FAERS Safety Report 13167192 (Version 1)
Quarter: 2017Q1

REPORT INFORMATION
  Report Type: Spontaneous
  Country: US (occurrence: US)
  Receive Date: 20170131
  Receipt Date: 20170131
  Transmission Date: 20170428
  Serious: Yes (Life-Threatening, Hospitalization, Disabling, Other)
  Sender: FDA-Public Use
  Company Number: None

PATIENT
  Age: 39 Year
  Sex: Female
  Weight: 170 kg

DRUGS (9)
  1. LYRICA [Concomitant]
     Active Substance: PREGABALIN
  2. LATUDA [Suspect]
     Active Substance: LURASIDONE HYDROCHLORIDE
     Indication: BIPOLAR DISORDER
     Dosage: STRENGTH 40MG 3/14/16, 60MG 4/28/16, 80MG 10/26/16
     Route: 048
     Dates: start: 20160314, end: 20161125
  3. LATUDA [Suspect]
     Active Substance: LURASIDONE HYDROCHLORIDE
     Indication: SUICIDAL IDEATION
     Dosage: STRENGTH 40MG 3/14/16, 60MG 4/28/16, 80MG 10/26/16
     Route: 048
     Dates: start: 20160314, end: 20161125
  4. IRON SUPPLEMENT [Concomitant]
     Active Substance: IRON
  5. INSULIN [Concomitant]
     Active Substance: INSULIN NOS
  6. ADVAIR HFA [Concomitant]
     Active Substance: FLUTICASONE PROPIONATE\SALMETEROL XINAFOATE
  7. LANTUS [Concomitant]
     Active Substance: INSULIN GLARGINE
  8. HUMALOG [Concomitant]
     Active Substance: INSULIN LISPRO
  9. KLONOPIN [Concomitant]
     Active Substance: CLONAZEPAM

REACTIONS (17)
  - Tracheal disorder [None]
  - Peripheral coldness [None]
  - Apparent death [None]
  - Ammonia increased [None]
  - Glassy eyes [None]
  - Emotional disorder [None]
  - Dialysis [None]
  - Impaired work ability [None]
  - Muscle disorder [None]
  - Renal failure [None]
  - Stress [None]
  - Aphonia [None]
  - Gait disturbance [None]
  - Blood glucose increased [None]
  - Confusional state [None]
  - Furuncle [None]
  - Impaired healing [None]

NARRATIVE: CASE EVENT DATE: 20161125
